FAERS Safety Report 4827686-1 (Version None)
Quarter: 2005Q4

REPORT INFORMATION
  Report Type: 
  Country: None (occurrence: None)
  Receive Date: 20051110
  Receipt Date: 20051102
  Transmission Date: 20060501
  Serious: Yes (Hospitalization)
  Sender: FDA-Public Use
  Company Number: GBS051118998

PATIENT
  Age: 70 Year
  Sex: Male
  Weight: 92 kg

DRUGS (6)
  1. GEMCITABINE HYDROCHLORIDE-IV (GEMCITABINE) [Suspect]
     Indication: RENAL CELL CARCINOMA STAGE UNSPECIFIED
     Dosage: 2014 MG/2 OTHER
     Route: 050
     Dates: start: 20050906
  2. CISPLATIN [Concomitant]
  3. MORPHINE SULFATE [Concomitant]
  4. LANSOPRAZOLE [Concomitant]
  5. ORAMORH (MORPHINE SULFATE) [Concomitant]
  6. DOMPERIDONE [Concomitant]

REACTIONS (3)
  - METASTASES TO CENTRAL NERVOUS SYSTEM [None]
  - NEUTROPENIC SEPSIS [None]
  - THERAPY NON-RESPONDER [None]
